FAERS Safety Report 6593734-4 (Version None)
Quarter: 2010Q1

REPORT INFORMATION
  Report Type: 
  Country: None (occurrence: None)
  Receive Date: 20100222
  Receipt Date: 20100105
  Transmission Date: 20100710
  Serious: Yes (Hospitalization)
  Sender: FDA-Public Use
  Company Number: SK-BIOGENIDEC-2010BI000671

PATIENT
  Age: 30 Year
  Sex: Male

DRUGS (1)
  1. TYSABRI [Suspect]
     Indication: MULTIPLE SCLEROSIS
     Dates: end: 20100105

REACTIONS (2)
  - BURNING SENSATION [None]
  - MUSCULOSKELETAL STIFFNESS [None]
